FAERS Safety Report 16184305 (Version 2)
Quarter: 2019Q2

REPORT INFORMATION
  Report Type: Spontaneous
  Country: US (occurrence: US)
  Receive Date: 20190411
  Receipt Date: 20190610
  Transmission Date: 20190711
  Serious: No
  Sender: FDA-Public Use
  Company Number: US-PFIZER INC-2019106112

PATIENT
  Age: 69 Year
  Sex: Female

DRUGS (1)
  1. VENLAFAXINE HCL [Suspect]
     Active Substance: VENLAFAXINE HYDROCHLORIDE
     Dosage: UNK

REACTIONS (5)
  - Balance disorder [Unknown]
  - Coordination abnormal [Unknown]
  - Abnormal dreams [Unknown]
  - Hallucination [Unknown]
  - Hyperhidrosis [Unknown]
